FAERS Safety Report 9971362 (Version 1)
Quarter: 2014Q1

REPORT INFORMATION
  Report Type: Spontaneous
  Country: US (occurrence: None)
  Receive Date: 20140305
  Receipt Date: 20140305
  Transmission Date: 20141002
  Serious: Yes (Other)
  Sender: FDA-Public Use
  Company Number: None

PATIENT
  Age: 49 Year
  Sex: Female
  Weight: 62.6 kg

DRUGS (2)
  1. TRAMA-DOL HCL [Suspect]
     Indication: NECK PAIN
     Dosage: ONE-HALF TABLET AS NEEDED?EVERY 6 HOURS
     Route: 048
  2. TRAMA-DOL HCL [Suspect]
     Indication: BACK PAIN
     Dosage: ONE-HALF TABLET AS NEEDED?EVERY 6 HOURS
     Route: 048

REACTIONS (8)
  - Nausea [None]
  - Malaise [None]
  - Palpitations [None]
  - Dyspnoea [None]
  - Angina pectoris [None]
  - Chills [None]
  - Vomiting [None]
  - Fear [None]
